FAERS Safety Report 4387968-7 (Version None)
Quarter: 2004Q2

REPORT INFORMATION
  Report Type: 
  Country: None (occurrence: None)
  Receive Date: 20040607
  Receipt Date: 20030501
  Transmission Date: 20050107
  Serious: Yes (Hospitalization)
  Sender: FDA-Public Use
  Company Number: 331606

PATIENT
  Age: 19 Year
  Sex: Female
  Weight: 87 kg

DRUGS (1)
  1. ACCUTANE [Suspect]
     Indication: ACNE CYSTIC
     Dosage: 40 MG 2 PER DAY ORAL
     Route: 048
     Dates: start: 20000815, end: 20020222

REACTIONS (14)
  - ALANINE AMINOTRANSFERASE INCREASED [None]
  - BACK PAIN [None]
  - BLOOD CHOLESTEROL INCREASED [None]
  - BLOOD TRIGLYCERIDES INCREASED [None]
  - CHEILITIS [None]
  - DEPRESSION [None]
  - DERMATITIS CONTACT [None]
  - HIGH DENSITY LIPOPROTEIN DECREASED [None]
  - LOW DENSITY LIPOPROTEIN INCREASED [None]
  - RASH [None]
  - SKIN IRRITATION [None]
  - SUICIDE ATTEMPT [None]
  - TOTAL CHOLESTEROL/HDL RATIO INCREASED [None]
  - XEROSIS [None]
